FAERS Safety Report 23396307 (Version 1)
Quarter: 2024Q1

REPORT INFORMATION
  Report Type: Spontaneous
  Country: ES (occurrence: ES)
  Receive Date: 20240112
  Receipt Date: 20240112
  Transmission Date: 20240410
  Serious: Yes (Other)
  Sender: FDA-Public Use
  Company Number: ES-MLMSERVICE-20231229-4745623-1

PATIENT
  Age: 78 Year
  Sex: Female

DRUGS (9)
  1. ALLOPURINOL [Suspect]
     Active Substance: ALLOPURINOL
     Indication: Product used for unknown indication
     Dosage: RECENTLY STARTED
     Dates: end: 202109
  2. HYDROCHLOROTHIAZIDE\OLMESARTAN MEDOXOMIL [Suspect]
     Active Substance: HYDROCHLOROTHIAZIDE\OLMESARTAN MEDOXOMIL
     Indication: Product used for unknown indication
     Dates: end: 202111
  3. ATORVASTATIN [Concomitant]
     Active Substance: ATORVASTATIN
     Dosage: FOR MORE THAN 8 YEARS
  4. FUROSEMIDE [Concomitant]
     Active Substance: FUROSEMIDE
     Indication: Oedema peripheral
     Dosage: RECENTLY STARTED
  5. GABAPENTIN [Concomitant]
     Active Substance: GABAPENTIN
     Dosage: FOR MORE THAN 8 YEARS
  6. COLCHICINE [Concomitant]
     Active Substance: COLCHICINE
     Dosage: FOR MORE THAN 8 YEARS
  7. OMEPRAZOLE [Concomitant]
     Active Substance: OMEPRAZOLE
     Dosage: FOR MORE THAN 8 YEARS
  8. DIGOXIN [Concomitant]
     Active Substance: DIGOXIN
     Dosage: FOR MORE THAN 8 YEARS
  9. PROPRANOLOL [Concomitant]
     Active Substance: PROPRANOLOL HYDROCHLORIDE
     Dosage: FOR MORE THAN 8 YEARS

REACTIONS (2)
  - Photosensitivity reaction [Recovered/Resolved]
  - Erythema multiforme [Recovered/Resolved]

NARRATIVE: CASE EVENT DATE: 20210901
